FAERS Safety Report 5000124-4 (Version None)
Quarter: 2006Q1

REPORT INFORMATION
  Report Type: 
  Country: None (occurrence: None)
  Receive Date: 20060315
  Receipt Date: 20051202
  Transmission Date: 20060701
  Serious: Yes (Other)
  Sender: FDA-Public Use
  Company Number: 412770

PATIENT
  Age: 58 Year
  Sex: Female
  Weight: 59 kg

DRUGS (3)
  1. BONIVA [Suspect]
     Indication: OSTEOPOROSIS
     Dosage: 150 MG PER MONTH ORAL
     Route: 048
     Dates: start: 20050725
  2. CALCIUM GLUCONATE [Concomitant]
  3. VITAMINS NOS (MULTIVITAMINS) [Concomitant]

REACTIONS (9)
  - ABDOMINAL PAIN UPPER [None]
  - ARTHRALGIA [None]
  - BACK PAIN [None]
  - BONE PAIN [None]
  - INFLAMMATION [None]
  - INSOMNIA [None]
  - MYALGIA [None]
  - OEDEMA PERIPHERAL [None]
  - PAIN IN EXTREMITY [None]
